FAERS Safety Report 22059503 (Version 1)
Quarter: 2023Q1

REPORT INFORMATION
  Report Type: Spontaneous
  Country: US (occurrence: None)
  Receive Date: 20230302
  Receipt Date: 20230302
  Transmission Date: 20230418
  Serious: Yes (Other)
  Sender: FDA-Public Use
  Company Number: None

PATIENT
  Age: 47 Year
  Sex: Female
  Weight: 112.5 kg

DRUGS (8)
  1. LAMOTRIGINE [Suspect]
     Active Substance: LAMOTRIGINE
     Indication: Bipolar disorder
     Dosage: OTHER QUANTITY : 1 TABLET(S);?FREQUENCY : AT BEDTIME;?
     Route: 048
     Dates: start: 20230113, end: 20230219
  2. Oxcarbezipine [Concomitant]
  3. ARMOUR THYROID [Concomitant]
     Active Substance: THYROID, PORCINE
  4. SYNTHROID [Concomitant]
     Active Substance: LEVOTHYROXINE SODIUM
  5. SERTRALINE [Concomitant]
     Active Substance: SERTRALINE HYDROCHLORIDE
  6. Lamotrigine(discontinued) [Concomitant]
  7. VITAMINS [Concomitant]
     Active Substance: VITAMINS
  8. Iron-Bifera [Concomitant]

REACTIONS (4)
  - Product substitution issue [None]
  - Blood pressure increased [None]
  - Blood triglycerides increased [None]
  - Malaise [None]

NARRATIVE: CASE EVENT DATE: 20230113
